FAERS Safety Report 9845144 (Version 2)
Quarter: 2014Q1

REPORT INFORMATION
  Report Type: Spontaneous
  Country: AU (occurrence: AU)
  Receive Date: 20140127
  Receipt Date: 20140127
  Transmission Date: 20141002
  Serious: Yes (Hospitalization)
  Sender: FDA-Public Use
  Company Number: AU-MALLINCKRODT-T201305116

PATIENT
  Sex: Female

DRUGS (2)
  1. EXALGO [Suspect]
     Indication: PRODUCT USED FOR UNKNOWN INDICATION
     Dosage: 8 MG, UNK
     Route: 048
  2. EXALGO [Suspect]
     Dosage: UNK
     Route: 048

REACTIONS (2)
  - Respiratory tract infection fungal [Not Recovered/Not Resolved]
  - Pharyngeal disorder [Not Recovered/Not Resolved]
